FAERS Safety Report 10505181 (Version 2)
Quarter: 2014Q4

REPORT INFORMATION
  Report Type: Spontaneous
  Country: CN (occurrence: CN)
  Receive Date: 20141008
  Receipt Date: 20141013
  Transmission Date: 20150528
  Serious: Yes (Death, Other)
  Sender: FDA-Public Use
  Company Number: CN-CUBIST PHARMACEUTICALS, INC.-2014CBST001381

PATIENT

DRUGS (15)
  1. CUBICIN [Suspect]
     Active Substance: DAPTOMYCIN
     Indication: GASTROINTESTINAL INFECTION
     Dosage: 8 MG/KG, QD
     Route: 048
     Dates: start: 20140301, end: 20140305
  2. GENTAMICIN. [Concomitant]
     Active Substance: GENTAMICIN
     Indication: ALPHA HAEMOLYTIC STREPTOCOCCAL INFECTION
  3. LACTOBACILLUS RHAMNOSUS [Concomitant]
     Active Substance: LACTOBACILLUS RHAMNOSUS
     Indication: ENTEROCOCCAL INFECTION
  4. MEROPENEM. [Concomitant]
     Active Substance: MEROPENEM
     Indication: SEPSIS
     Dosage: 500 MG, Q12H
     Route: 042
  5. PENICILLIN                         /00000901/ [Concomitant]
     Active Substance: PENICILLIN
     Indication: ENDOCARDITIS
     Dosage: 3 MU, Q4H
     Route: 042
     Dates: start: 20140225, end: 20140308
  6. GENTAMICIN. [Concomitant]
     Active Substance: GENTAMICIN
     Indication: ENDOCARDITIS
     Dosage: 40 MG, Q8H
     Route: 042
     Dates: start: 20140219, end: 20140302
  7. LACTOBACILLUS RHAMNOSUS [Concomitant]
     Active Substance: LACTOBACILLUS RHAMNOSUS
     Indication: GASTROINTESTINAL INFECTION
     Dosage: 80 MG, QD
     Route: 048
  8. POLYETHYLENE GLYCOL [Concomitant]
     Active Substance: POLYETHYLENE GLYCOLS
     Indication: GASTROINTESTINAL INFECTION
     Dosage: 2 LITERS OVER 6 HOURS
     Route: 048
  9. CUBICIN [Suspect]
     Active Substance: DAPTOMYCIN
     Indication: SEPSIS
  10. CUBICIN [Suspect]
     Active Substance: DAPTOMYCIN
     Indication: OFF LABEL USE
  11. LINEZOLID. [Concomitant]
     Active Substance: LINEZOLID
     Indication: ENTEROCOCCAL INFECTION
  12. CUBICIN [Suspect]
     Active Substance: DAPTOMYCIN
     Indication: ENTEROCOCCAL INFECTION
     Dosage: 350 MG, ONE DOSE
     Route: 042
  13. LINEZOLID. [Concomitant]
     Active Substance: LINEZOLID
     Indication: GASTROINTESTINAL INFECTION
     Dosage: 600 MG, Q12H
     Route: 048
  14. PENICILLIN                         /00000901/ [Concomitant]
     Active Substance: PENICILLIN
     Indication: ALPHA HAEMOLYTIC STREPTOCOCCAL INFECTION
  15. POLYETHYLENE GLYCOL [Concomitant]
     Active Substance: POLYETHYLENE GLYCOLS
     Indication: ENTEROCOCCAL INFECTION

REACTIONS (8)
  - Metabolic acidosis [Unknown]
  - Off label use [Unknown]
  - Respiratory distress [Unknown]
  - Intestinal ischaemia [Unknown]
  - Renal impairment [Unknown]
  - Hypotension [Unknown]
  - Death [Fatal]
  - Intestinal gangrene [Unknown]
